FAERS Safety Report 8185466-6 (Version None)
Quarter: 2012Q1

REPORT INFORMATION
  Report Type: 
  Country: None (occurrence: None)
  Receive Date: 20120305
  Receipt Date: 20120227
  Transmission Date: 20120608
  Serious: Yes (Other)
  Sender: FDA-Public Use
  Company Number: IE-PFIZER INC-2012052472

PATIENT
  Sex: Female

DRUGS (1)
  1. LYRICA [Suspect]
     Indication: BACK PAIN
     Dosage: 300 MG, 1X/DAY AT NIGHT

REACTIONS (3)
  - INSOMNIA [None]
  - DRUG DEPENDENCE [None]
  - ANXIETY [None]
